FAERS Safety Report 7951383-7 (Version None)
Quarter: 2011Q4

REPORT INFORMATION
  Report Type: 
  Country: None (occurrence: None)
  Receive Date: 20111129
  Receipt Date: 20111115
  Transmission Date: 20120403
  Serious: Yes (Other)
  Sender: FDA-Public Use
  Company Number: 2011SP054070

PATIENT
  Age: 70 Year
  Sex: Female

DRUGS (2)
  1. TEMODAL [Suspect]
     Indication: PRODUCT USED FOR UNKNOWN INDICATION
  2. KERLONE [Concomitant]

REACTIONS (2)
  - SKIN EXFOLIATION [None]
  - ERYTHEMA NODOSUM [None]
